FAERS Safety Report 9849646 (Version 1)
Quarter: 2014Q1

REPORT INFORMATION
  Report Type: Spontaneous
  Country: US (occurrence: None)
  Receive Date: 20140124
  Receipt Date: 20140124
  Transmission Date: 20141002
  Serious: Yes (Hospitalization)
  Sender: FDA-Public Use
  Company Number: SYM-2014-15243

PATIENT
  Age: 52 Year
  Sex: Female

DRUGS (13)
  1. BUPROPION HYDROCHLORIDE (BUPROPION HYDROCHLORIDE) (BUPROPION HYDROCHLORIDE) [Suspect]
     Indication: DEPRESSION
     Dosage: UNKNOWN
  2. INVESTIGATIONAL DRUG (INVESTIGATIONAL DRUG) [Concomitant]
  3. ZOLPIDEM TARTRATE (ZOLPIDEM TARTRATE) (ZOLPIDEM TARTRATE) [Concomitant]
  4. LORAZEPAM (LORAZEPAM) (LORAZEPAM) [Concomitant]
  5. OXYCODONE HYDROCHLORIDE (OXYCODONE HYDROCHLORIDE) (OXYCODONE HYDROCHLORIDE) [Concomitant]
  6. ACYCLOVIR (ACICLOVIR) (ACICLOVIR) [Concomitant]
  7. DEXAMETHASONE (DEXAMETHASONE) (DEXAMETHASONE) [Concomitant]
  8. DARATUMUMAB (DARATUMUMAB) (DARATUMUMAB) [Concomitant]
  9. SODIUM BICARBONATE (SODIUM BICARBONATE) (SODIUM BICARBONATE) [Concomitant]
  10. VENLAFAXINE (VENLAFAXINE) (VENLAFAXINE) [Concomitant]
  11. ONDANSETRON (ONDANSETRON) (ONDANSETRON) [Concomitant]
  12. PANTOPRAZOLE (PANTOPRAZOLE) (PANTOPRAZOLE) [Concomitant]
  13. PROMETHAZINE (PROMETHAZINE) (PROMETHAZINE) [Concomitant]

REACTIONS (15)
  - Renal failure acute [None]
  - Hypercalcaemia [None]
  - Vomiting [None]
  - Nausea [None]
  - Fatigue [None]
  - Dizziness [None]
  - Thirst [None]
  - Headache [None]
  - Decreased appetite [None]
  - Weight decreased [None]
  - Hyperuricaemia [None]
  - Thrombocytopenia [None]
  - Alanine aminotransferase increased [None]
  - Blood alkaline phosphatase increased [None]
  - Aspartate aminotransferase increased [None]
